FAERS Safety Report 6701990-4 (Version None)
Quarter: 2010Q2

REPORT INFORMATION
  Report Type: 
  Country: None (occurrence: None)
  Receive Date: 20100429
  Receipt Date: 20100419
  Transmission Date: 20101027
  Serious: Yes (Hospitalization)
  Sender: FDA-Public Use
  Company Number: DE-ROCHE-698341

PATIENT
  Sex: Female
  Weight: 60 kg

DRUGS (12)
  1. TRASTUZUMAB [Suspect]
     Indication: BREAST CANCER
     Dosage: LOADING DOSE.
     Route: 042
     Dates: start: 20100114
  2. TRASTUZUMAB [Suspect]
     Dosage: MAINTENCE DOSE. TOTAL DOSE: 360 MG, FORM: VIAL LAST DOSE ON 25 FEBRUARY 2010.
     Route: 042
     Dates: start: 20100204
  3. DOCETAXEL [Suspect]
     Indication: BREAST CANCER
     Dosage: TOTAL DOSE: 168 MG, FORM: VIAL.  LAST DOSE ON 25 FEBRUARY 2010.
     Route: 042
     Dates: start: 20100114
  4. FLUOROURACIL [Suspect]
     Indication: BREAST CANCER
     Dosage: FORM:VIAL, TOTAL DOSE: 1006 MG.  LAST DOSE ON 08 APRIL 2010.
     Route: 042
     Dates: start: 20100318
  5. EPIRUBICIN [Suspect]
     Indication: BREAST CANCER
     Dosage: FORM:VIAL, TOTAL DOSE:151 MG.  LAST DOSE ON 08 APRIL 2010.
     Route: 042
     Dates: start: 20100318
  6. CYCLOPHOSPHAMIDE [Suspect]
     Indication: BREAST CANCER
     Dosage: FORM: VIAL, TOTAL DOSE: 1006 MG.  LAST DOSE ON 08 APRIL 2010.
     Route: 042
     Dates: start: 20100318
  7. UROMITEXAN [Concomitant]
     Dates: start: 20100318, end: 20100318
  8. UROMITEXAN [Concomitant]
     Dates: start: 20100408, end: 20100408
  9. GRANISETRON [Concomitant]
     Dates: start: 20100318, end: 20100318
  10. GRANISETRON [Concomitant]
     Dates: start: 20100408, end: 20100408
  11. DEXAMETHASONE TAB [Concomitant]
     Dates: start: 20100318, end: 20100318
  12. DEXAMETHASONE TAB [Concomitant]
     Dates: start: 20100408, end: 20100408

REACTIONS (1)
  - PULMONARY EMBOLISM [None]
